FAERS Safety Report 6112477-4 (Version None)
Quarter: 2009Q1

REPORT INFORMATION
  Report Type: 
  Country: None (occurrence: None)
  Receive Date: 20090312
  Receipt Date: 20090306
  Transmission Date: 20090719
  Serious: Yes (Other)
  Sender: FDA-Public Use
  Company Number: BR-JNJFOC-20081200378

PATIENT
  Sex: Female
  Weight: 60 kg

DRUGS (4)
  1. ORTHO EVRA [Suspect]
     Indication: MENSTRUATION IRREGULAR
     Route: 062
  2. ORTHO EVRA [Suspect]
     Indication: PREMENSTRUAL SYNDROME
     Route: 062
  3. ORTHO EVRA [Suspect]
     Indication: CONTRACEPTION
     Dosage: ETHINYL ESTRADIOL 0.6MG/NORELGSTROMIN 6MG
     Route: 062
  4. OTHER THERAPEUTIC DRUGS [Concomitant]
     Indication: PREMENSTRUAL SYNDROME
     Route: 065

REACTIONS (6)
  - ACNE [None]
  - ANAEMIA [None]
  - BLOOD CHOLESTEROL INCREASED [None]
  - INAPPROPRIATE SCHEDULE OF DRUG ADMINISTRATION [None]
  - OFF LABEL USE [None]
  - THERAPEUTIC RESPONSE UNEXPECTED [None]
